FAERS Safety Report 8857721 (Version 2)
Quarter: 2012Q4

REPORT INFORMATION
  Report Type: 
  Country: US (occurrence: US)
  Receive Date: 20121024
  Receipt Date: 20121030
  Transmission Date: 20130627
  Serious: Yes (Hospitalization)
  Sender: FDA-Public Use
  Company Number: US-B.I. PHARMACEUTICALS,INC./RIDGEFIELD-2012-BP-26178BP

PATIENT
  Sex: Female
  Weight: 64 kg

DRUGS (2)
  1. COMBIVENT [Suspect]
     Indication: CHRONIC OBSTRUCTIVE PULMONARY DISEASE
     Route: 055
     Dates: start: 2006
  2. VENTOLIN [Concomitant]
     Route: 055

REACTIONS (4)
  - Coronary artery occlusion [Recovered/Resolved]
  - Fluid retention [Not Recovered/Not Resolved]
  - Heart rate increased [Recovered/Resolved]
  - Product quality issue [Unknown]
